FAERS Safety Report 18904878 (Version 1)
Quarter: 2021Q1

REPORT INFORMATION
  Report Type: Spontaneous
  Country: US (occurrence: US)
  Receive Date: 20210217
  Receipt Date: 20210217
  Transmission Date: 20210420
  Serious: Yes (Other)
  Sender: FDA-Public Use
  Company Number: US-CELLTRION INC.-2021US001990

PATIENT

DRUGS (6)
  1. SULFAMETHOXAZOLE [Suspect]
     Active Substance: SULFAMETHOXAZOLE
     Route: 064
  2. PREDNISONE. [Suspect]
     Active Substance: PREDNISONE
     Route: 064
  3. RITUXIMAB (UNKNOWN) [Suspect]
     Active Substance: RITUXIMAB
     Route: 064
  4. HCQ [Suspect]
     Active Substance: HYDROXYCHLOROQUINE SULFATE
     Route: 064
  5. METHYLPREDNISOLONE. [Suspect]
     Active Substance: METHYLPREDNISOLONE
     Route: 064
  6. TRIMETHOPRIM. [Suspect]
     Active Substance: TRIMETHOPRIM
     Route: 064

REACTIONS (7)
  - Jaundice neonatal [Unknown]
  - Hypoglycaemia neonatal [Unknown]
  - Small for dates baby [Unknown]
  - Foetal exposure during pregnancy [Unknown]
  - Neonatal tachypnoea [Unknown]
  - Respiratory disorder neonatal [Unknown]
  - Temperature regulation disorder [Unknown]
